FAERS Safety Report 11704272 (Version 8)
Quarter: 2016Q1

REPORT INFORMATION
  Report Type: Spontaneous
  Country: US (occurrence: US)
  Receive Date: 20151106
  Receipt Date: 20160331
  Transmission Date: 20160525
  Serious: Yes (Other)
  Sender: FDA-Public Use
  Company Number: US-PFIZER INC-2015378057

PATIENT
  Age: 54 Year
  Sex: Male

DRUGS (22)
  1. CHLORHEXIDINE GLUCONATE. [Suspect]
     Active Substance: CHLORHEXIDINE GLUCONATE
     Dosage: UNK, 2X/DAY (0.12% MOUTH/THROAT SOLUTION, 0.5 OX/TEETH AND GUMS)
     Route: 048
  2. ALBUTEROL W/IPRATROPIUM [Suspect]
     Active Substance: ALBUTEROL\IPRATROPIUM
     Dosage: UNK, (0.5-2.5 (3) MG/3ML)
     Route: 055
  3. NOVOLIN N [Suspect]
     Active Substance: INSULIN HUMAN
     Dosage: UNK, 2X/DAY (17 UNITS)
     Route: 058
  4. PROTONIX [Suspect]
     Active Substance: PANTOPRAZOLE SODIUM
     Dosage: 40 MG, 2X/DAY ((1 PACKET = 40 MG VIA GASTRIC TUBE)
     Route: 048
  5. DILANTIN [Suspect]
     Active Substance: PHENYTOIN
     Dosage: UNK, (1.25 MG/5 ML, ADMINISTER 200 MG = 8 ML; VIN GASTRIC TUBE IN PM)
  6. DILANTIN [Suspect]
     Active Substance: PHENYTOIN
     Dosage: UNK, (125 MG/5 ML) (150 MG # 6 MLS EVERY AM)
  7. FAMOTIDINE. [Suspect]
     Active Substance: FAMOTIDINE
     Dosage: 40 MG, 2X/DAY (40 MG/5 ML ADMINISTER: 20MG/2.5ML VIA GTUBE BID)
     Route: 048
  8. POTASSIUM CHLORIDE. [Suspect]
     Active Substance: POTASSIUM CHLORIDE
     Dosage: UNK, 2X/DAY (7.5 ML = 20 MEQ GASTRIC TUBE)
  9. BACLOFEN. [Suspect]
     Active Substance: BACLOFEN
     Indication: MUSCLE SPASTICITY
     Dosage: 24 UG, DAILY
     Route: 037
  10. CEFPODOXIME PROXETIL. [Suspect]
     Active Substance: CEFPODOXIME PROXETIL
     Dosage: 200 MG, UNK
     Route: 048
  11. MYLANTA [Suspect]
     Active Substance: ALUMINUM HYDROXIDE\DIMETHICONE\MAGNESIUM HYDROXIDE
     Dosage: 30 ML, AS NEEDED (200-2000-20 MG/5 ML GIVE 30 ML VIA GASTRIC TUBE)
  12. GUAIFENESIN. [Suspect]
     Active Substance: GUAIFENESIN
     Dosage: UNK, (100 MG/MLS; 10 MLS, GASTRIC TUBE EVERY 6 HOURS)
  13. VITAMIN C [Suspect]
     Active Substance: ASCORBIC ACID
     Dosage: 500 MG, 2X/DAY
     Route: 048
  14. LIORESAL [Suspect]
     Active Substance: BACLOFEN
     Indication: BRAIN INJURY
     Dosage: 300 UG, DAILY
     Route: 037
  15. ACIDOPHILUS [Suspect]
     Active Substance: LACTOBACILLUS ACIDOPHILUS
     Dosage: 1 DF, 2X/DAY (GASTRIC TUBE)
     Route: 048
  16. METOPROLOL TARTRATE. [Suspect]
     Active Substance: METOPROLOL TARTRATE
     Dosage: 75 MG, 2X/DAY (25 MG 3 TABS = 75 MG)
     Route: 048
  17. SIMVASTATIN. [Suspect]
     Active Substance: SIMVASTATIN
     Dosage: 10 MG, UNK
     Route: 048
  18. ROBITUSSIN (GUAIFENESIN) [Suspect]
     Active Substance: GUAIFENESIN
     Dosage: UNK
  19. LIORESAL [Suspect]
     Active Substance: BACLOFEN
     Indication: MUSCLE SPASTICITY
     Dosage: UNK UNK, DAILY (100-101 MCG)
     Route: 037
  20. LIORESAL [Suspect]
     Active Substance: BACLOFEN
     Indication: HEAD INJURY
  21. LEVETIRACETAM. [Suspect]
     Active Substance: LEVETIRACETAM
     Dosage: UNK, 2X/DAY (1000 MG - 10 ML VIA GASTRIC TUBE)
     Route: 048
  22. METOCLOPRAMIDE HCL [Suspect]
     Active Substance: METOCLOPRAMIDE HYDROCHLORIDE
     Dosage: 10 MG, UNK
     Route: 048

REACTIONS (4)
  - Apallic syndrome [Unknown]
  - Drug hypersensitivity [Unknown]
  - Acute respiratory distress syndrome [Unknown]
  - No therapeutic response [Unknown]

NARRATIVE: CASE EVENT DATE: 20140714
